FAERS Safety Report 12357311 (Version 6)
Quarter: 2017Q1

REPORT INFORMATION
  Report Type: Report from Study
  Country: DE (occurrence: DE)
  Receive Date: 20160511
  Receipt Date: 20170302
  Transmission Date: 20170428
  Serious: Yes (Death, Life-Threatening, Hospitalization, Other)
  Sender: FDA-Public Use
  Company Number: DE-GILEAD-2016-0211301

PATIENT
  Age: 77 Year
  Sex: Male
  Weight: 75 kg

DRUGS (6)
  1. CAPTOGAMMA [Concomitant]
     Indication: HYPERTENSION
     Dosage: 6.25
     Dates: start: 1989, end: 20160427
  2. IDELALISIB [Suspect]
     Active Substance: IDELALISIB
     Indication: CHRONIC LYMPHOCYTIC LEUKAEMIA
     Dosage: 300 MG, QD
     Route: 048
     Dates: start: 20160210, end: 20160427
  3. MABTHERA [Suspect]
     Active Substance: RITUXIMAB
     Dosage: 100 MG-500 MG
     Route: 065
     Dates: start: 20160218, end: 20160218
  4. IDELALISIB [Suspect]
     Active Substance: IDELALISIB
     Dosage: 300 UNK, UNK
     Route: 048
     Dates: start: 20160210, end: 20160501
  5. MABTHERA [Suspect]
     Active Substance: RITUXIMAB
     Indication: CHRONIC LYMPHOCYTIC LEUKAEMIA
     Dosage: 100 MG-500 MG
     Route: 065
     Dates: start: 20160414, end: 20160414
  6. MABTHERA [Suspect]
     Active Substance: RITUXIMAB
     Dosage: 100 MG-500 MG
     Route: 065
     Dates: start: 20160303, end: 20160331

REACTIONS (3)
  - Sepsis [Unknown]
  - Pneumonia [Unknown]
  - Cerebral infarction [Fatal]

NARRATIVE: CASE EVENT DATE: 20160427
